FAERS Safety Report 20775238 (Version 1)
Quarter: 2022Q2

REPORT INFORMATION
  Report Type: Spontaneous
  Country: US (occurrence: None)
  Receive Date: 20220502
  Receipt Date: 20220502
  Transmission Date: 20220720
  Serious: Yes (unspecified)
  Sender: FDA-Public Use
  Company Number: None

PATIENT
  Age: 9 Year
  Sex: Female

DRUGS (1)
  1. REMDESIVIR [Suspect]
     Active Substance: REMDESIVIR
     Dosage: FREQUENCY : DAILY;?
     Route: 042
     Dates: start: 20210804, end: 20210807

REACTIONS (1)
  - Hypertension [None]

NARRATIVE: CASE EVENT DATE: 20210807
